FAERS Safety Report 9441380 (Version 1)
Quarter: 2013Q3

REPORT INFORMATION
  Report Type: Spontaneous
  Country: BR (occurrence: BR)
  Receive Date: 20130805
  Receipt Date: 20130805
  Transmission Date: 20140515
  Serious: Yes (Other)
  Sender: FDA-Public Use
  Company Number: BR-ABBOTT-12P-020-1012629-00

PATIENT
  Age: 37 Year
  Sex: Female
  Weight: 62.4 kg

DRUGS (4)
  1. KALETRA TABLETS 200/50 [Suspect]
     Indication: HIV INFECTION
     Route: 048
     Dates: start: 20091121
  2. TENOFOVIR [Concomitant]
     Indication: HIV INFECTION
     Route: 048
     Dates: start: 20091121
  3. LAMIVUDINE [Concomitant]
     Indication: HIV INFECTION
     Dates: start: 20091121
  4. FOLIC ACID/VITAMIN A/VITAMIN B/VITAMIN E/IRON/ZINC/THIAMINE [Concomitant]
     Indication: VITAMIN SUPPLEMENTATION
     Dates: start: 201011

REACTIONS (1)
  - Abortion spontaneous [Unknown]
